FAERS Safety Report 23195734 (Version 1)
Quarter: 2023Q4

REPORT INFORMATION
  Report Type: Spontaneous
  Country: US (occurrence: US)
  Receive Date: 20231117
  Receipt Date: 20231117
  Transmission Date: 20240110
  Serious: Yes (Other)
  Sender: FDA-Public Use
  Company Number: US-009507513-2311USA002784

PATIENT

DRUGS (27)
  1. PRIMAXIN IV [Suspect]
     Active Substance: CILASTATIN SODIUM\IMIPENEM
     Indication: Atypical mycobacterial infection
     Dosage: UNK
     Route: 042
     Dates: start: 202201
  2. PRIMAXIN IV [Suspect]
     Active Substance: CILASTATIN SODIUM\IMIPENEM
     Indication: Skin bacterial infection
  3. PRIMAXIN IV [Suspect]
     Active Substance: CILASTATIN SODIUM\IMIPENEM
     Indication: Mycobacterium fortuitum infection
  4. NUZYRA [Suspect]
     Active Substance: OMADACYCLINE
     Indication: Atypical mycobacterial infection
     Dosage: UNK
     Route: 048
  5. NUZYRA [Suspect]
     Active Substance: OMADACYCLINE
     Indication: Skin bacterial infection
  6. NUZYRA [Suspect]
     Active Substance: OMADACYCLINE
     Indication: Mycobacterium fortuitum infection
  7. LINEZOLID [Suspect]
     Active Substance: LINEZOLID
     Indication: Atypical mycobacterial infection
     Dosage: UNK
     Route: 048
     Dates: start: 202201, end: 202202
  8. LINEZOLID [Suspect]
     Active Substance: LINEZOLID
     Indication: Mycobacterium fortuitum infection
  9. LINEZOLID [Suspect]
     Active Substance: LINEZOLID
     Indication: Skin bacterial infection
  10. MOXIFLOXACIN [Suspect]
     Active Substance: MOXIFLOXACIN
     Indication: Atypical mycobacterial infection
     Dosage: UNK
     Route: 048
  11. MOXIFLOXACIN [Suspect]
     Active Substance: MOXIFLOXACIN
     Indication: Skin bacterial infection
  12. MOXIFLOXACIN [Suspect]
     Active Substance: MOXIFLOXACIN
     Indication: Mycobacterium fortuitum infection
  13. DOXYCYCLINE [Suspect]
     Active Substance: DOXYCYCLINE
     Indication: Atypical mycobacterial infection
     Dosage: UNK
     Route: 048
  14. DOXYCYCLINE [Suspect]
     Active Substance: DOXYCYCLINE
     Indication: Skin bacterial infection
  15. DOXYCYCLINE [Suspect]
     Active Substance: DOXYCYCLINE
     Indication: Mycobacterium fortuitum infection
  16. CLINDAMYCIN [Suspect]
     Active Substance: CLINDAMYCIN
     Indication: Atypical mycobacterial infection
     Dosage: UNK
     Route: 048
  17. CLINDAMYCIN [Suspect]
     Active Substance: CLINDAMYCIN
     Indication: Skin bacterial infection
  18. CLINDAMYCIN [Suspect]
     Active Substance: CLINDAMYCIN
     Indication: Mycobacterium fortuitum infection
  19. LEVAQUIN [Suspect]
     Active Substance: LEVOFLOXACIN
     Indication: Atypical mycobacterial infection
     Dosage: UNK
     Route: 048
  20. LEVAQUIN [Suspect]
     Active Substance: LEVOFLOXACIN
     Indication: Skin bacterial infection
  21. LEVAQUIN [Suspect]
     Active Substance: LEVOFLOXACIN
     Indication: Mycobacterium fortuitum infection
  22. AUGMENTIN [Suspect]
     Active Substance: AMOXICILLIN\CLAVULANATE POTASSIUM
     Indication: Atypical mycobacterial infection
     Dosage: UNK
     Route: 048
  23. AUGMENTIN [Suspect]
     Active Substance: AMOXICILLIN\CLAVULANATE POTASSIUM
     Indication: Skin bacterial infection
  24. AUGMENTIN [Suspect]
     Active Substance: AMOXICILLIN\CLAVULANATE POTASSIUM
     Indication: Mycobacterium fortuitum infection
  25. BACTRIM [Suspect]
     Active Substance: SULFAMETHOXAZOLE\TRIMETHOPRIM
     Indication: Atypical mycobacterial infection
     Dosage: UNK
     Route: 048
  26. BACTRIM [Suspect]
     Active Substance: SULFAMETHOXAZOLE\TRIMETHOPRIM
     Indication: Skin bacterial infection
  27. BACTRIM [Suspect]
     Active Substance: SULFAMETHOXAZOLE\TRIMETHOPRIM
     Indication: Mycobacterium fortuitum infection

REACTIONS (12)
  - Hepatotoxicity [Unknown]
  - Cutaneous sporotrichosis [Unknown]
  - Nausea [Unknown]
  - Diarrhoea [Unknown]
  - Dizziness [Unknown]
  - Dry mouth [Unknown]
  - Hepatic enzyme increased [Unknown]
  - Poor quality sleep [Unknown]
  - Hypoaesthesia [Unknown]
  - Skin mass [Unknown]
  - Disease progression [Unknown]
  - Product use in unapproved indication [Unknown]
